FAERS Safety Report 19570640 (Version 1)
Quarter: 2021Q3

REPORT INFORMATION
  Report Type: Spontaneous
  Country: US (occurrence: US)
  Receive Date: 20210716
  Receipt Date: 20210716
  Transmission Date: 20211014
  Serious: No
  Sender: FDA-Public Use
  Company Number: US-TEVA-2021-US-1931447

PATIENT
  Age: 59 Year
  Sex: Female

DRUGS (2)
  1. TEVA FLUOXETINE [Suspect]
     Active Substance: FLUOXETINE HYDROCHLORIDE
     Indication: ANXIETY
     Dosage: DAILY
     Route: 065
  2. TEVA FLUOXETINE [Suspect]
     Active Substance: FLUOXETINE HYDROCHLORIDE
     Indication: DEPRESSION
     Dosage: DAILY
     Route: 065
     Dates: end: 20210705

REACTIONS (6)
  - Feeling abnormal [Recovered/Resolved]
  - Tinnitus [Not Recovered/Not Resolved]
  - Product dose omission issue [Unknown]
  - Therapy cessation [Unknown]
  - Euphoric mood [Recovered/Resolved]
  - Drug ineffective [Unknown]
